FAERS Safety Report 16956305 (Version 1)
Quarter: 2019Q4

REPORT INFORMATION
  Report Type: Spontaneous
  Country: US (occurrence: US)
  Receive Date: 20190904
  Receipt Date: 20190904
  Transmission Date: 20200122
  Serious: Yes (Hospitalization)
  Sender: FDA-Public Use
  Company Number: None

PATIENT
  Age: 65 Year
  Sex: Female
  Weight: 55.79 kg

DRUGS (10)
  1. AMLODIPINE BESYLATE AND BENAZEPRIL HYDROCHLORIDE [Concomitant]
     Active Substance: AMLODIPINE BESYLATE\BENAZEPRIL HYDROCHLORIDE
  2. FAMOTIDINE. [Concomitant]
     Active Substance: FAMOTIDINE
  3. BEVACIZUMAB (RHUMAB VEGF) [Suspect]
     Active Substance: BEVACIZUMAB
     Dates: end: 20190807
  4. DOXIL [Suspect]
     Active Substance: DOXORUBICIN HYDROCHLORIDE
     Dates: end: 20190724
  5. ONDANSTERON [Concomitant]
     Active Substance: ONDANSETRON
  6. HYDRALAZINE [Concomitant]
     Active Substance: HYDRALAZINE HYDROCHLORIDE
  7. RUROSEMIDE [Concomitant]
  8. MOTRIN [Concomitant]
     Active Substance: IBUPROFEN
  9. CARVEDILOL. [Concomitant]
     Active Substance: CARVEDILOL
  10. ZYRTEC [Concomitant]
     Active Substance: CETIRIZINE HYDROCHLORIDE

REACTIONS (35)
  - Headache [None]
  - Haematocrit decreased [None]
  - Aspartate aminotransferase increased [None]
  - Reticulocyte count increased [None]
  - Tympanic membrane perforation [None]
  - Oedema peripheral [None]
  - Rales [None]
  - Pleural effusion [None]
  - Ejection fraction decreased [None]
  - Inappropriate antidiuretic hormone secretion [None]
  - Haemoglobin decreased [None]
  - Blood alkaline phosphatase increased [None]
  - Blood sodium decreased [None]
  - Blood albumin decreased [None]
  - Mean cell haemoglobin concentration increased [None]
  - N-terminal prohormone brain natriuretic peptide increased [None]
  - Mean cell haemoglobin increased [None]
  - Blood calcium decreased [None]
  - Red cell distribution width increased [None]
  - Jugular vein distension [None]
  - Protein urine [None]
  - Acute kidney injury [None]
  - Red cell distribution width decreased [None]
  - Platelet count decreased [None]
  - Blood bilirubin increased [None]
  - Blood lactate dehydrogenase increased [None]
  - Hypoaesthesia [None]
  - Cardiac failure congestive [None]
  - Red blood cell count decreased [None]
  - Lymphocyte count decreased [None]
  - Blood chloride decreased [None]
  - Protein total decreased [None]
  - Blood glucose increased [None]
  - Blood urine [None]
  - Haptoglobin decreased [None]

NARRATIVE: CASE EVENT DATE: 20190824
